FAERS Safety Report 6745124-9 (Version None)
Quarter: 2010Q2

REPORT INFORMATION
  Report Type: 
  Country: None (occurrence: None)
  Receive Date: 20100527
  Receipt Date: 20100520
  Transmission Date: 20101027
  Serious: Yes (Other)
  Sender: FDA-Public Use
  Company Number: BR-GENENTECH-294825

PATIENT
  Sex: Female
  Weight: 69 kg

DRUGS (21)
  1. RITUXIMAB [Suspect]
     Indication: SYSTEMIC LUPUS ERYTHEMATOSUS
     Dosage: 1000 MG/ML, UNK
     Route: 042
     Dates: start: 20080711, end: 20081001
  2. RITUXIMAB [Suspect]
     Dosage: 1000 MG/ML, UNK
     Route: 042
     Dates: start: 20090601, end: 20090601
  3. RITUXIMAB [Suspect]
     Dosage: 1000 MG/ML, Q15D
     Route: 042
     Dates: start: 20100430, end: 20100516
  4. GARDENAL [Concomitant]
     Indication: DRUG USE FOR UNKNOWN INDICATION
     Dosage: 100 MG, UNK
     Route: 065
  5. CITALOPRAM [Concomitant]
     Indication: DEPRESSION
     Dosage: 30 MG, PRN
     Dates: start: 20090501
  6. AZATHIOPRINE SODIUM [Concomitant]
     Indication: DRUG USE FOR UNKNOWN INDICATION
     Dosage: UNK MG, UNK
  7. HYDROXYCHLOROQUINE SULFATE [Concomitant]
     Indication: DRUG USE FOR UNKNOWN INDICATION
     Dosage: 400 MG, UNK
  8. PREDNISONE TAB [Concomitant]
     Indication: DRUG USE FOR UNKNOWN INDICATION
     Dosage: 5 MG, UNK
  9. VERTIX [Concomitant]
     Indication: DRUG USE FOR UNKNOWN INDICATION
     Dosage: 10 MG, UNK
  10. RIVOTRIL [Concomitant]
     Indication: DRUG USE FOR UNKNOWN INDICATION
     Dosage: 2 MG, UNK
  11. NAPROXEN [Concomitant]
     Indication: HEADACHE
     Dosage: 100 MG, UNK
  12. TRAMADOL HCL [Concomitant]
     Indication: HEADACHE
     Dosage: 100 MG, UNK
  13. TAMARIN [Concomitant]
     Indication: CONSTIPATION
     Dosage: UNK
     Route: 048
     Dates: start: 19990101
  14. PANTOPRAZOLE [Concomitant]
     Indication: DRUG USE FOR UNKNOWN INDICATION
     Dosage: UNK
  15. FLUNAZOL [Concomitant]
     Indication: HYPERSENSITIVITY
     Dosage: 200 MG, UNK
  16. DORFLEX [Concomitant]
     Indication: HEADACHE
  17. TOPIRAMATE [Concomitant]
     Indication: DRUG USE FOR UNKNOWN INDICATION
     Dosage: 50 MG, X3
  18. SENNA [Concomitant]
     Indication: DRUG USE FOR UNKNOWN INDICATION
     Dosage: 400 MG, UNK
  19. CYCLOBENZAPRINE [Concomitant]
     Indication: HEADACHE
     Dosage: 10 MG, UNK
  20. CHLOROQUINE HYDROCHLORIDE [Concomitant]
     Indication: DRUG USE FOR UNKNOWN INDICATION
     Dosage: 400 MG, UNK
  21. BETAMETHASONE DIPROPIONATE [Concomitant]
     Indication: DRUG USE FOR UNKNOWN INDICATION

REACTIONS (12)
  - ALOPECIA [None]
  - ARTHRALGIA [None]
  - CONVULSION [None]
  - DEPRESSION [None]
  - EMOTIONAL DISORDER [None]
  - HEADACHE [None]
  - NAUSEA [None]
  - NECK PAIN [None]
  - PAIN [None]
  - TEMPOROMANDIBULAR JOINT SYNDROME [None]
  - THERAPEUTIC RESPONSE DECREASED [None]
  - URINARY TRACT INFECTION [None]
